FAERS Safety Report 5272299-3 (Version None)
Quarter: 2007Q1

REPORT INFORMATION
  Report Type: 
  Country: None (occurrence: None)
  Receive Date: 20070322
  Receipt Date: 20070313
  Transmission Date: 20070707
  Serious: Yes (Hospitalization)
  Sender: FDA-Public Use
  Company Number: FR-JNJFOC-20070302932

PATIENT
  Age: 83 Year
  Sex: Female

DRUGS (14)
  1. TAVANIC [Suspect]
     Indication: INFECTION
     Dosage: 4 WEEKS + 2 DAYS
     Route: 048
  2. CARDENSIEL [Concomitant]
     Route: 048
  3. ZOCOR [Concomitant]
     Route: 048
  4. ROVAMYCINE [Concomitant]
     Indication: POSTOPERATIVE WOUND INFECTION
     Route: 048
  5. TRIATEC [Concomitant]
     Route: 048
  6. XANAX [Concomitant]
     Route: 048
  7. XANAX [Concomitant]
     Route: 048
  8. SEROPRAM [Concomitant]
     Route: 048
  9. SKENAN [Concomitant]
     Route: 048
  10. ACTISKENAN [Concomitant]
     Route: 048
  11. NITRODERM [Concomitant]
     Route: 061
  12. NEXIUM [Concomitant]
     Route: 048
  13. PLAVIX [Concomitant]
     Route: 048
  14. ADANCOR [Concomitant]
     Route: 048

REACTIONS (5)
  - EOSINOPHILIA [None]
  - HYPOTENSION [None]
  - PRURITUS [None]
  - RASH ERYTHEMATOUS [None]
  - RENAL FAILURE ACUTE [None]
